FAERS Safety Report 4875231-7 (Version None)
Quarter: 2006Q1

REPORT INFORMATION
  Report Type: 
  Country: None (occurrence: None)
  Receive Date: 20060109
  Receipt Date: 20051005
  Transmission Date: 20060701
  Serious: Yes (Hospitalization, Disabling)
  Sender: FDA-Public Use
  Company Number: US-MERCK-0510USA03282

PATIENT
  Age: 36 Year
  Sex: Female
  Weight: 75 kg

DRUGS (5)
  1. VIOXX [Suspect]
     Indication: MYALGIA
     Route: 048
     Dates: start: 19990101, end: 20020101
  2. VIOXX [Suspect]
     Indication: INTERVERTEBRAL DISC PROTRUSION
     Route: 048
     Dates: start: 19990101, end: 20020101
  3. BAYCOL [Concomitant]
     Route: 065
  4. MACRODANTIN [Concomitant]
     Route: 065
  5. PRILOSEC [Concomitant]
     Route: 048

REACTIONS (3)
  - CARDIOVASCULAR DISORDER [None]
  - INTERVERTEBRAL DISC PROTRUSION [None]
  - SUBARACHNOID HAEMORRHAGE [None]
